FAERS Safety Report 13704972 (Version 1)
Quarter: 2017Q2

REPORT INFORMATION
  Report Type: Spontaneous
  Country: US (occurrence: US)
  Receive Date: 20170629
  Receipt Date: 20170629
  Transmission Date: 20170830
  Serious: Yes (Disabling)
  Sender: FDA-Public Use
  Company Number: None

PATIENT
  Age: 66 Year
  Sex: Female
  Weight: 54 kg

DRUGS (5)
  1. DIAZAPAM 10 MG GEL [Suspect]
     Active Substance: DIAZEPAM
  2. FIORINAL [Concomitant]
     Active Substance: ASPIRIN\BUTALBITAL\CAFFEINE
  3. ADVIL [Concomitant]
     Active Substance: IBUPROFEN
  4. KLONOPIN [Suspect]
     Active Substance: CLONAZEPAM
     Indication: INSOMNIA
     Dosage: ?          OTHER STRENGTH:MG;QUANTITY:1 TABLET(S);?
     Route: 048
     Dates: start: 19960601, end: 20120106
  5. KLONOPIN [Suspect]
     Active Substance: CLONAZEPAM
     Indication: RESTLESS LEGS SYNDROME
     Dosage: ?          OTHER STRENGTH:MG;QUANTITY:1 TABLET(S);?
     Route: 048
     Dates: start: 19960601, end: 20120106

REACTIONS (14)
  - Constipation [None]
  - Weight decreased [None]
  - Parathyroid disorder [None]
  - Cognitive disorder [None]
  - Influenza like illness [None]
  - Amnesia [None]
  - Myalgia [None]
  - Nightmare [None]
  - Malaise [None]
  - Confusional state [None]
  - Fear [None]
  - Withdrawal syndrome [None]
  - Muscle spasms [None]
  - Pain [None]

NARRATIVE: CASE EVENT DATE: 20050928
